FAERS Safety Report 11707013 (Version 7)
Quarter: 2018Q2

REPORT INFORMATION
  Report Type: Spontaneous
  Country: US (occurrence: US)
  Receive Date: 20151106
  Receipt Date: 20180530
  Transmission Date: 20180711
  Serious: No
  Sender: FDA-Public Use
  Company Number: US-ACTELION PHARMACEUTICALS US, INC.-A-US2015-126831

PATIENT
  Age: 75 Year
  Sex: Female

DRUGS (21)
  1. DOXEPIN [Concomitant]
     Active Substance: DOXEPIN
  2. VOLTAREN [Concomitant]
     Active Substance: DICLOFENAC SODIUM
  3. JANUVIA [Concomitant]
     Active Substance: SITAGLIPTIN PHOSPHATE
  4. VITAMIN D [Concomitant]
     Active Substance: CHOLECALCIFEROL
  5. VENTOLIN [Concomitant]
     Active Substance: ALBUTEROL SULFATE
  6. BELVIQ [Concomitant]
     Active Substance: LORCASERIN HYDROCHLORIDE
  7. RIOCIGUAT. [Concomitant]
     Active Substance: RIOCIGUAT
  8. SYNTHROID [Concomitant]
     Active Substance: LEVOTHYROXINE SODIUM
  9. NASONEX [Concomitant]
     Active Substance: MOMETASONE FUROATE
  10. COUMADIN [Concomitant]
     Active Substance: WARFARIN SODIUM
  11. OXYGEN. [Concomitant]
     Active Substance: OXYGEN
  12. OPSUMIT [Suspect]
     Active Substance: MACITENTAN
     Indication: PULMONARY HYPERTENSION
     Dosage: 10 MG, QD
     Route: 048
     Dates: start: 20141002
  13. OXYCONTIN [Concomitant]
     Active Substance: OXYCODONE HYDROCHLORIDE
  14. LANTUS [Concomitant]
     Active Substance: INSULIN GLARGINE
  15. ACETAZOLAMIDE. [Concomitant]
     Active Substance: ACETAZOLAMIDE
  16. ALPRAZOLAM. [Concomitant]
     Active Substance: ALPRAZOLAM
  17. FUROSEMIDE. [Concomitant]
     Active Substance: FUROSEMIDE
  18. FLUOXETINE [Concomitant]
     Active Substance: FLUOXETINE HYDROCHLORIDE
  19. CRESTOR [Concomitant]
     Active Substance: ROSUVASTATIN CALCIUM
  20. ATENOLOL. [Concomitant]
     Active Substance: ATENOLOL
  21. RECLAST [Concomitant]
     Active Substance: ZOLEDRONIC ACID

REACTIONS (10)
  - Swelling [Unknown]
  - Extra dose administered [Recovered/Resolved]
  - Lower respiratory tract infection [Not Recovered/Not Resolved]
  - Dysuria [Not Recovered/Not Resolved]
  - Unevaluable event [Unknown]
  - Hypoaesthesia [Unknown]
  - Epistaxis [Recovered/Resolved]
  - Psoriasis [Unknown]
  - Dyspnoea [Unknown]
  - Drug dose omission [Unknown]

NARRATIVE: CASE EVENT DATE: 201510
